FAERS Safety Report 16851433 (Version 12)
Quarter: 2021Q3

REPORT INFORMATION
  Report Type: Spontaneous
  Country: US (occurrence: US)
  Receive Date: 20190925
  Receipt Date: 20210726
  Transmission Date: 20211014
  Serious: Yes (Hospitalization)
  Sender: FDA-Public Use
  Company Number: US-PFIZER INC-2019412995

PATIENT
  Age: 66 Year
  Sex: Female
  Weight: 86.17 kg

DRUGS (4)
  1. LYRICA [Suspect]
     Active Substance: PREGABALIN
     Indication: CONGENITAL TERATOMA
     Dosage: 75 MG, 3X/DAY (TAKE 1 CAPSULE(S) 3 TIMES A DAY BY ORAL ROUTE FOR 90 DAYS)
     Route: 048
  2. LYRICA [Suspect]
     Active Substance: PREGABALIN
     Indication: SPINAL DISORDER
  3. LYRICA [Suspect]
     Active Substance: PREGABALIN
     Indication: BACK PAIN
     Dosage: 75 MG, 3X/DAY
     Route: 048
     Dates: start: 2018
  4. LYRICA [Suspect]
     Active Substance: PREGABALIN
     Indication: COCCYDYNIA
     Dosage: 75 MG, 2X/DAY
     Dates: start: 201809

REACTIONS (2)
  - Tremor [Not Recovered/Not Resolved]
  - Reading disorder [Unknown]
